FAERS Safety Report 6284412-X (Version None)
Quarter: 2009Q3

REPORT INFORMATION
  Report Type: 
  Country: None (occurrence: None)
  Receive Date: 20090727
  Receipt Date: 20090720
  Transmission Date: 20100115
  Serious: Yes (Hospitalization)
  Sender: FDA-Public Use
  Company Number: MY-ROCHE-644837

PATIENT
  Age: 23 Year
  Sex: Female

DRUGS (10)
  1. DIAZEPAM [Suspect]
     Route: 042
  2. DICLOFENAC SODIUM [Suspect]
     Indication: ABDOMINAL PAIN
     Route: 030
  3. METOCLOPRAMIDE [Suspect]
     Indication: VOMITING
     Route: 042
  4. PHENYTOIN [Suspect]
     Dosage: TAKEN EVERY NIGHT
     Route: 048
  5. PANTOPRAZOLE SODIUM [Suspect]
     Indication: DRUG USE FOR UNKNOWN INDICATION
     Route: 042
  6. DROTAVERINE [Suspect]
     Indication: DRUG USE FOR UNKNOWN INDICATION
     Route: 030
  7. PENTAZOCINE LACTATE [Suspect]
     Indication: ABDOMINAL PAIN
     Route: 042
  8. PROMETHAZINE [Suspect]
     Indication: VOMITING
     Route: 042
  9. PROPRANOLOL HYDROCHLORIDE [Concomitant]
  10. PROPRANOLOL HYDROCHLORIDE [Concomitant]
     Dosage: DOSE TAPERED

REACTIONS (2)
  - LOSS OF CONSCIOUSNESS [None]
  - PORPHYRIA ACUTE [None]
